FAERS Safety Report 17251068 (Version 1)
Quarter: 2020Q1

REPORT INFORMATION
  Report Type: Spontaneous
  Country: SE (occurrence: SE)
  Receive Date: 20200109
  Receipt Date: 20200109
  Transmission Date: 20200409
  Serious: Yes (Hospitalization)
  Sender: FDA-Public Use
  Company Number: SE-MYLANLABS-2020M1002078

PATIENT
  Age: 31 Year
  Sex: Female

DRUGS (1)
  1. LERGIGAN (PROMETHAZINE) [Suspect]
     Active Substance: PROMETHAZINE HYDROCHLORIDE
     Indication: PRODUCT USED FOR UNKNOWN INDICATION
     Dosage: CA 10-20 - EN NAVE LERGIGAN
     Route: 048
     Dates: start: 20181109, end: 20181109

REACTIONS (5)
  - Intentional overdose [Unknown]
  - Sinus tachycardia [Unknown]
  - Blood pressure increased [Unknown]
  - Intentional self-injury [Unknown]
  - Loss of consciousness [Unknown]

NARRATIVE: CASE EVENT DATE: 20181109
